FAERS Safety Report 9766554 (Version 1)
Quarter: 2013Q4

REPORT INFORMATION
  Report Type: Spontaneous
  Country: US (occurrence: US)
  Receive Date: 20131217
  Receipt Date: 20131217
  Transmission Date: 20140711
  Serious: No
  Sender: FDA-Public Use
  Company Number: US-BIOGENIDEC-2013BI118693

PATIENT
  Sex: Female

DRUGS (8)
  1. TECFIDERA [Suspect]
     Indication: PRODUCT USED FOR UNKNOWN INDICATION
     Route: 048
     Dates: start: 20131031, end: 201311
  2. DONEPEZIL HCL [Concomitant]
     Route: 048
  3. ESCITALOPRAM OXALATE [Concomitant]
     Route: 048
  4. LUNESTA [Concomitant]
     Route: 048
  5. METHYLPHENIDATE HCL [Concomitant]
     Route: 048
  6. PANTOPRAZOLE SODIUM [Concomitant]
     Route: 048
  7. SERTRALINE HCL [Concomitant]
     Route: 048
  8. VITAMIN D [Concomitant]
     Route: 048

REACTIONS (10)
  - Fall [Recovered/Resolved]
  - Depression [Unknown]
  - Abnormal behaviour [Unknown]
  - Contusion [Unknown]
  - Personality change [Unknown]
  - Memory impairment [Unknown]
  - Gait disturbance [Unknown]
  - Hypersomnia [Unknown]
  - Drug intolerance [Unknown]
  - Gastrointestinal disorder [Unknown]
